FAERS Safety Report 8306591-2 (Version None)
Quarter: 2012Q2

REPORT INFORMATION
  Report Type: 
  Country: None (occurrence: None)
  Receive Date: 20120420
  Receipt Date: 20120420
  Transmission Date: 20120825
  Serious: Yes (Hospitalization)
  Sender: FDA-Public Use
  Company Number: None

PATIENT
  Age: 46 Year
  Sex: Male
  Weight: 77.1 kg

DRUGS (8)
  1. XANAX [Concomitant]
  2. ZOFRAN [Concomitant]
  3. CARBOPLATIN [Suspect]
     Indication: NON-SMALL CELL LUNG CANCER STAGE III
     Dosage: 300MG WEEKLY X6 WEEKS IV
     Route: 042
  4. COMPAZINE [Concomitant]
  5. PACLITAXEL [Suspect]
     Indication: NON-SMALL CELL LUNG CANCER STAGE III
     Dosage: 88MG WEEKLY X6 WEEKS IV
     Route: 042
     Dates: start: 20111129
  6. HYDROCODONE BITARTRATE + ACETAMINOPHEN [Concomitant]
  7. ATIVAN [Concomitant]
  8. MULTIVITAMIN ORAL [Concomitant]

REACTIONS (6)
  - PANCYTOPENIA [None]
  - HYPOKALAEMIA [None]
  - CHILLS [None]
  - SINUSITIS [None]
  - PYREXIA [None]
  - MENINGITIS ASEPTIC [None]
